FAERS Safety Report 17262287 (Version 2)
Quarter: 2020Q1

REPORT INFORMATION
  Report Type: Spontaneous
  Country: US (occurrence: US)
  Receive Date: 20200113
  Receipt Date: 20200124
  Transmission Date: 20200409
  Serious: Yes (Death)
  Sender: FDA-Public Use
  Company Number: US-VERTEX PHARMACEUTICALS-2020-000144

PATIENT
  Age: 28 Year
  Sex: Female

DRUGS (11)
  1. AZITHROMYCIN ANHYDROUS. [Concomitant]
     Active Substance: AZITHROMYCIN ANHYDROUS
  2. AMIKACIN. [Concomitant]
     Active Substance: AMIKACIN
     Route: 042
  3. CEFTALIN [CEFTAZIDIME] [Concomitant]
     Route: 042
  4. TRIKAFTA [Suspect]
     Active Substance: ELEXACAFTOR\IVACAFTOR\TEZACAFTOR
     Indication: CYSTIC FIBROSIS
     Dosage: 2 TABLETS(100MG ELEXACAFTOR/50MG TEZACAFTOR/75MG IVACAFTOR)AM AND 1 TABLET(150MG IVACAFTOR)PM, BID
     Route: 048
     Dates: start: 20191210
  5. ZYROX [Concomitant]
     Active Substance: ROXITHROMYCIN
     Route: 042
  6. HYPERTONIC SALINE SOLUTION [Concomitant]
     Active Substance: SODIUM CHLORIDE
  7. SALMETEROL [Concomitant]
     Active Substance: SALMETEROL
  8. ISOCONAZOLE [Concomitant]
     Active Substance: ISOCONAZOLE
  9. DORNASE ALFA. [Concomitant]
     Active Substance: DORNASE ALFA
  10. CEFTAZIDIM [Concomitant]
     Active Substance: CEFTAZIDIME
     Route: 042
  11. MUCOMYST [ACETYLCYSTEINE] [Concomitant]

REACTIONS (3)
  - Acute respiratory distress syndrome [Fatal]
  - Acute respiratory failure [Fatal]
  - Infective pulmonary exacerbation of cystic fibrosis [Fatal]

NARRATIVE: CASE EVENT DATE: 201912
